FAERS Safety Report 12860106 (Version 1)
Quarter: 2016Q4

REPORT INFORMATION
  Report Type: Report from Study
  Country: CA (occurrence: CA)
  Receive Date: 20161019
  Receipt Date: 20161019
  Transmission Date: 20170207
  Serious: Yes (Hospitalization)
  Sender: FDA-Public Use
  Company Number: CA-JNJFOC-20161012822

PATIENT
  Age: 54 Year
  Sex: Male
  Weight: 74.5 kg

DRUGS (3)
  1. REMICADE [Suspect]
     Active Substance: INFLIXIMAB
     Indication: CROHN^S DISEASE
     Route: 042
     Dates: start: 20161012
  2. REMICADE [Suspect]
     Active Substance: INFLIXIMAB
     Indication: CROHN^S DISEASE
     Route: 042
     Dates: start: 20121210
  3. REMICADE [Suspect]
     Active Substance: INFLIXIMAB
     Indication: CROHN^S DISEASE
     Route: 042
     Dates: start: 20121220

REACTIONS (6)
  - Off label use [Unknown]
  - Abdominal pain [Unknown]
  - General physical health deterioration [Unknown]
  - Intestinal resection [Unknown]
  - Frequent bowel movements [Unknown]
  - Product use issue [Unknown]

NARRATIVE: CASE EVENT DATE: 20121210
